FAERS Safety Report 7409524-6 (Version None)
Quarter: 2011Q2

REPORT INFORMATION
  Report Type: 
  Country: None (occurrence: None)
  Receive Date: 20110407
  Receipt Date: 20110407
  Transmission Date: 20111010
  Serious: Yes (Hospitalization)
  Sender: FDA-Public Use
  Company Number: None

PATIENT
  Sex: Female
  Weight: 20.5 kg

DRUGS (6)
  1. CYCLOPHOSPHAMIDE [Suspect]
     Dosage: 6640 MG
  2. VINCRISTINE SULFATE [Suspect]
     Dosage: 2.52 MG
  3. ETOPOSIDE [Suspect]
     Dosage: 960 MG
  4. CISPLATIN [Suspect]
     Dosage: 320 MG
  5. DOXORUBICIN HYDROCHLORIDE [Suspect]
     Dosage: 120 MG
  6. TOPOTECAN [Suspect]
     Dosage: 10 MG

REACTIONS (4)
  - BONE MARROW TRANSPLANT [None]
  - TREATMENT RELATED SECONDARY MALIGNANCY [None]
  - EPSTEIN-BARR VIRUS ASSOCIATED LYMPHOPROLIFERATIVE DISORDER [None]
  - B-CELL LYMPHOMA [None]
